FAERS Safety Report 16630112 (Version 2)
Quarter: 2020Q4

REPORT INFORMATION
  Report Type: Report from Study
  Country: None (occurrence: CO)
  Receive Date: 20190725
  Receipt Date: 20201105
  Transmission Date: 20210113
  Serious: Yes (Other)
  Sender: FDA-Public Use
  Company Number: CO-ABBVIE-19K-036-2864794-00

PATIENT
  Sex: Female
  Weight: 53 kg

DRUGS (4)
  1. MESALAZINE [Concomitant]
     Active Substance: MESALAMINE
     Indication: COLITIS ULCERATIVE
     Route: 048
  2. HUMIRA [Suspect]
     Active Substance: ADALIMUMAB
     Indication: COLITIS ULCERATIVE
     Route: 058
     Dates: start: 20160610
  3. HUMIRA [Suspect]
     Active Substance: ADALIMUMAB
     Indication: COLITIS ULCERATIVE
     Route: 058
     Dates: end: 20190626
  4. METHOTREXATE. [Concomitant]
     Active Substance: METHOTREXATE
     Indication: RHEUMATOID ARTHRITIS
     Route: 048

REACTIONS (12)
  - Sleep disorder [Recovering/Resolving]
  - Biopsy site unspecified abnormal [Unknown]
  - Pyrexia [Recovering/Resolving]
  - Colonoscopy abnormal [Unknown]
  - Tremor [Recovering/Resolving]
  - Chills [Recovering/Resolving]
  - Papilloma [Recovering/Resolving]
  - Colitis ulcerative [Recovering/Resolving]
  - Hyperhidrosis [Recovering/Resolving]
  - Rheumatoid arthritis [Recovering/Resolving]
  - Malaise [Recovering/Resolving]
  - Asthenia [Recovering/Resolving]

NARRATIVE: CASE EVENT DATE: 2019
